FAERS Safety Report 22343047 (Version 1)
Quarter: 2023Q2

REPORT INFORMATION
  Report Type: Spontaneous
  Country: CN (occurrence: None)
  Receive Date: 20230519
  Receipt Date: 20230519
  Transmission Date: 20230721
  Serious: Yes (Hospitalization)
  Sender: FDA-Public Use
  Company Number: CN-Merck Healthcare KGaA-9401243

PATIENT
  Age: 30 Year
  Sex: Female
  Weight: 61 kg

DRUGS (9)
  1. LUVERIS [Suspect]
     Active Substance: LUTROPIN ALFA
     Indication: Ovarian hyperstimulation syndrome
     Route: 058
     Dates: start: 20230424, end: 20230424
  2. GONAL-F [Suspect]
     Active Substance: FOLLITROPIN
     Indication: Ovarian hyperstimulation syndrome
     Route: 058
     Dates: start: 20230425, end: 20230425
  3. OVIDREL [Suspect]
     Active Substance: CHORIOGONADOTROPIN ALFA
     Indication: Ovarian hyperstimulation syndrome
     Route: 058
     Dates: start: 20230425, end: 20230425
  4. MENOTROPINS [Suspect]
     Active Substance: MENOTROPINS
     Indication: Ovarian hyperstimulation syndrome
     Route: 030
     Dates: start: 20230414, end: 20230424
  5. MENOTROPINS [Suspect]
     Active Substance: MENOTROPINS
     Route: 030
     Dates: start: 20230425, end: 20230425
  6. FOLLITROPIN BETA [Suspect]
     Active Substance: FOLLITROPIN BETA
     Indication: Ovarian hyperstimulation syndrome
     Route: 058
     Dates: start: 20230414, end: 20230418
  7. FOLLITROPIN BETA [Suspect]
     Active Substance: FOLLITROPIN BETA
     Route: 058
     Dates: start: 20230419, end: 20230423
  8. SODIUM CHLORIDE [Concomitant]
     Active Substance: SODIUM CHLORIDE
     Indication: Vehicle solution use
     Route: 030
     Dates: start: 20230414, end: 20230424
  9. SODIUM CHLORIDE [Concomitant]
     Active Substance: SODIUM CHLORIDE
     Route: 030
     Dates: start: 20230425, end: 20230425

REACTIONS (6)
  - Tension [Recovering/Resolving]
  - Chest discomfort [Recovering/Resolving]
  - Dizziness [Recovering/Resolving]
  - Ovarian hyperstimulation syndrome [Recovering/Resolving]
  - Abdominal distension [Recovering/Resolving]
  - Abdominal pain [Recovering/Resolving]

NARRATIVE: CASE EVENT DATE: 20230427
